FAERS Safety Report 25097911 (Version 1)
Quarter: 2025Q1

REPORT INFORMATION
  Report Type: Spontaneous
  Country: DE (occurrence: DE)
  Receive Date: 20250320
  Receipt Date: 20250320
  Transmission Date: 20250409
  Serious: Yes (Other)
  Sender: AUROBINDO
  Company Number: DE-BFARM-25001591

PATIENT
  Sex: Male

DRUGS (2)
  1. ATORVASTATIN [Suspect]
     Active Substance: ATORVASTATIN
     Indication: Transient ischaemic attack
     Route: 065
     Dates: start: 201911
  2. EZETIMIBE [Suspect]
     Active Substance: EZETIMIBE
     Indication: Transient ischaemic attack
     Route: 065
     Dates: start: 201911

REACTIONS (1)
  - Myasthenia gravis [Unknown]
